FAERS Safety Report 4751381-0 (Version None)
Quarter: 2005Q3

REPORT INFORMATION
  Report Type: 
  Country: None (occurrence: None)
  Receive Date: 20050822
  Receipt Date: 20050808
  Transmission Date: 20060218
  Serious: Yes (Other)
  Sender: FDA-Public Use
  Company Number: HQWYE842710AUG05

PATIENT
  Age: 36 Year
  Sex: Female
  Weight: 97.16 kg

DRUGS (6)
  1. EFFEXOR XR [Suspect]
     Indication: DEPRESSION
     Dosage: SEE IMAGE
     Route: 048
     Dates: start: 20050101, end: 20050101
  2. EFFEXOR XR [Suspect]
     Indication: DEPRESSION
     Dosage: SEE IMAGE
     Route: 048
     Dates: start: 20050101, end: 20050101
  3. EFFEXOR XR [Suspect]
     Indication: DEPRESSION
     Dosage: SEE IMAGE
     Route: 048
     Dates: start: 20050101, end: 20050201
  4. PERCOCET [Concomitant]
  5. METHADONE HCL [Concomitant]
  6. PLAQUENIL [Concomitant]

REACTIONS (2)
  - DRUG INEFFECTIVE [None]
  - HOMICIDAL IDEATION [None]
